FAERS Safety Report 16340361 (Version 9)
Quarter: 2019Q4

REPORT INFORMATION
  Report Type: Spontaneous
  Country: CA (occurrence: CA)
  Receive Date: 20190522
  Receipt Date: 20191219
  Transmission Date: 20200122
  Serious: Yes (Other)
  Sender: FDA-Public Use
  Company Number: CA-CELLTRION INC.-2019CA021288

PATIENT

DRUGS (16)
  1. INFLECTRA [Suspect]
     Active Substance: INFLIXIMAB-DYYB
     Dosage: 10 MG/KG, AT WEEKS 0, 2, AND 4, THEN EVERY 8 WEEKS
     Route: 042
     Dates: start: 20190430, end: 20190430
  2. INFLECTRA [Suspect]
     Active Substance: INFLIXIMAB-DYYB
     Dosage: 10 MG/KG, AT WEEKS 0, 2, AND 4, THEN EVERY 8 WEEKS
     Route: 042
     Dates: start: 20190521, end: 20190521
  3. PREDNISONE. [Concomitant]
     Active Substance: PREDNISONE
     Dosage: 20 MG, 1X/DAY
     Route: 048
     Dates: start: 201906
  4. INFLECTRA [Suspect]
     Active Substance: INFLIXIMAB-DYYB
     Dosage: 10 MG/KG, AT WEEKS 0, 2, AND 4, THEN EVERY 8 WEEKS
     Route: 042
     Dates: start: 20191206
  5. CALCIUM [Concomitant]
     Active Substance: CALCIUM
     Dosage: 2 DF, ONCE DAILY
     Route: 048
  6. VITAMIN D [Concomitant]
     Active Substance: VITAMIN D NOS
     Dosage: UNK, WEEKLY
     Route: 048
  7. INFLECTRA [Suspect]
     Active Substance: INFLIXIMAB-DYYB
     Dosage: 10 MG/KG, AT WEEKS 0, 2, AND 4, THEN EVERY 8 WEEKS
     Route: 042
     Dates: start: 20190621
  8. LACTAID [Concomitant]
     Active Substance: LACTASE
     Dosage: UNK
     Route: 065
  9. CORTENEMA [Concomitant]
     Active Substance: HYDROCORTISONE
     Dosage: UNK
     Dates: start: 201906
  10. INFLECTRA [Suspect]
     Active Substance: INFLIXIMAB-DYYB
     Dosage: 10 MG/KG, AT WEEKS 0, 2, AND 4, THEN EVERY 8 WEEKS
     Route: 042
     Dates: start: 20190816
  11. INFLECTRA [Suspect]
     Active Substance: INFLIXIMAB-DYYB
     Dosage: 10 MG/KG, AT WEEKS 0, 2, AND 4, THEN EVERY 8 WEEKS
     Route: 042
     Dates: start: 20191011
  12. INFLECTRA [Suspect]
     Active Substance: INFLIXIMAB-DYYB
     Dosage: 10 MG/KG, AT WEEKS 0, 2, AND 4, THEN EVERY 8 WEEKS
     Route: 042
     Dates: start: 20191206
  13. PREDNISONE. [Concomitant]
     Active Substance: PREDNISONE
     Dosage: UNK
     Route: 065
     Dates: start: 20190410
  14. INFLECTRA [Suspect]
     Active Substance: INFLIXIMAB-DYYB
     Indication: COLITIS ULCERATIVE
     Dosage: 5 MG/KG, AT 0, 2, 6 WEEKS, THEN EVERY 8 WEEKS
     Route: 042
     Dates: start: 20190417
  15. INFLECTRA [Suspect]
     Active Substance: INFLIXIMAB-DYYB
     Dosage: 10 MG/KG, AT WEEKS 0, 2, AND 4, THEN EVERY 8 WEEKS
     Route: 042
     Dates: start: 20190521, end: 20190521
  16. INFLECTRA [Suspect]
     Active Substance: INFLIXIMAB-DYYB
     Dosage: 10 MG/KG, AT WEEKS 0, 2, AND 4, THEN EVERY 8 WEEKS
     Route: 042
     Dates: start: 20190521, end: 20190521

REACTIONS (16)
  - Abdominal pain [Recovered/Resolved]
  - Hypoaesthesia [Unknown]
  - Abscess intestinal [Unknown]
  - Back pain [Unknown]
  - Fatigue [Unknown]
  - Therapy non-responder [Unknown]
  - Condition aggravated [Unknown]
  - Nausea [Unknown]
  - Arthralgia [Unknown]
  - Crohn^s disease [Unknown]
  - Throat irritation [Not Recovered/Not Resolved]
  - Productive cough [Unknown]
  - Myalgia [Unknown]
  - Cough [Not Recovered/Not Resolved]
  - Off label use [Unknown]
  - Heart rate irregular [Unknown]

NARRATIVE: CASE EVENT DATE: 2019
